FAERS Safety Report 4371097-2 (Version None)
Quarter: 2004Q2

REPORT INFORMATION
  Report Type: 
  Country: None (occurrence: None)
  Receive Date: 20040604
  Receipt Date: 20040525
  Transmission Date: 20050107
  Serious: Yes (Other)
  Sender: FDA-Public Use
  Company Number: PHBS2004JP06960

PATIENT
  Age: 45 Year
  Sex: Male

DRUGS (2)
  1. DIOVAN [Suspect]
     Indication: HYPERTENSION
     Dosage: 40 MG/DAY
     Route: 048
     Dates: start: 20040510, end: 20040510
  2. SALOBEL [Suspect]
     Dosage: 100 MG/DAY
     Route: 048
     Dates: start: 20040510, end: 20040510

REACTIONS (1)
  - BLOOD CREATINE PHOSPHOKINASE INCREASED [None]
